FAERS Safety Report 7224404-7 (Version None)
Quarter: 2011Q1

REPORT INFORMATION
  Report Type: 
  Country: None (occurrence: None)
  Receive Date: 20110113
  Receipt Date: 20110107
  Transmission Date: 20110831
  Serious: Yes (Death, Other)
  Sender: FDA-Public Use
  Company Number: BR-JNJFOC-20101206243

PATIENT
  Age: 12 Year
  Sex: Female

DRUGS (6)
  1. HALOPERIDOL [Suspect]
     Indication: CONVULSION
     Route: 065
  2. CLOBAZAM [Interacting]
     Indication: CONVULSION
     Route: 065
  3. CARBAMAZEPINE [Interacting]
     Indication: CONVULSION
     Route: 065
  4. CHLORPROMAZINE [Interacting]
     Indication: CONVULSION
     Route: 065
  5. IMIPRAMINE [Interacting]
     Indication: CONVULSION
     Route: 065
  6. PHENOBARBITAL TAB [Interacting]
     Indication: CONVULSION
     Route: 065

REACTIONS (14)
  - DEATH [None]
  - RESPIRATORY FAILURE [None]
  - DEPRESSED LEVEL OF CONSCIOUSNESS [None]
  - OFF LABEL USE [None]
  - HEPATOTOXICITY [None]
  - PRESYNCOPE [None]
  - SOMNOLENCE [None]
  - PULMONARY HAEMORRHAGE [None]
  - CONFUSIONAL STATE [None]
  - AGGRESSION [None]
  - TREMOR [None]
  - DRUG INTERACTION [None]
  - BRONCHOPNEUMONIA [None]
  - FALL [None]
